FAERS Safety Report 8045212 (Version 3)
Quarter: 2013Q3

REPORT INFORMATION
  Report Type: Spontaneous
  Country: US (occurrence: US)
  Receive Date: 20110720
  Receipt Date: 20130718
  Transmission Date: 20140515
  Serious: Yes (Congenital Anomaly, Other)
  Sender: FDA-Public Use
  Company Number: US-PFIZER INC-2011159676

PATIENT
  Sex: Male

DRUGS (4)
  1. ZOLOFT [Suspect]
     Dosage: 100 MG, UNK
     Route: 064
     Dates: start: 1992, end: 2002
  2. SERTRALINE HCL [Suspect]
     Dosage: UNK
     Route: 064
     Dates: start: 1992, end: 2002
  3. PRENATAL VITAMINS [Concomitant]
     Dosage: UNK
     Route: 064
  4. ADVIL [Concomitant]
     Dosage: UNK
     Route: 064

REACTIONS (5)
  - Maternal exposure timing unspecified [Not Recovered/Not Resolved]
  - Craniosynostosis [Unknown]
  - Congenital anomaly [Unknown]
  - Headache [Not Recovered/Not Resolved]
  - Visual impairment [Unknown]
